FAERS Safety Report 10440706 (Version 1)
Quarter: 2014Q3

REPORT INFORMATION
  Report Type: Spontaneous
  Country: US (occurrence: None)
  Receive Date: 20140908
  Receipt Date: 20140908
  Transmission Date: 20150326
  Serious: Yes (Disabling, Other)
  Sender: FDA-Public Use
  Company Number: None

PATIENT
  Age: 51 Year
  Sex: Female
  Weight: 58.06 kg

DRUGS (2)
  1. RABEPRAZOLE SODIUM. [Suspect]
     Active Substance: RABEPRAZOLE SODIUM
     Indication: DYSKINESIA OESOPHAGEAL
     Route: 048
     Dates: start: 20140825, end: 20140906
  2. RABEPRAZOLE SODIUM. [Suspect]
     Active Substance: RABEPRAZOLE SODIUM
     Indication: GASTROOESOPHAGEAL REFLUX DISEASE
     Route: 048
     Dates: start: 20140825, end: 20140906

REACTIONS (3)
  - Pain [None]
  - Product substitution issue [None]
  - Burning sensation [None]

NARRATIVE: CASE EVENT DATE: 20140825
